FAERS Safety Report 18171945 (Version 1)
Quarter: 2020Q3

REPORT INFORMATION
  Report Type: Spontaneous
  Country: US (occurrence: US)
  Receive Date: 20200819
  Receipt Date: 20200819
  Transmission Date: 20201103
  Serious: No
  Sender: FDA-Public Use
  Company Number: US-SA-2020SA212180

PATIENT

DRUGS (1)
  1. LANTUS [Suspect]
     Active Substance: INSULIN GLARGINE
     Indication: TYPE 2 DIABETES MELLITUS
     Dosage: 110 IU AND 120 IU IN THE MORNING AND EVENING
     Route: 065

REACTIONS (2)
  - Inappropriate schedule of product administration [Unknown]
  - Multiple use of single-use product [Unknown]
